FAERS Safety Report 7514108-5 (Version None)
Quarter: 2011Q2

REPORT INFORMATION
  Report Type: 
  Country: None (occurrence: None)
  Receive Date: 20110531
  Receipt Date: 20101026
  Transmission Date: 20111010
  Serious: No
  Sender: FDA-Public Use
  Company Number: US-BAYER-201038570NA

PATIENT

DRUGS (2)
  1. CORTICOSTEROID NOS [Concomitant]
     Indication: RESPIRATORY DISORDER
  2. AVELOX [Suspect]
     Dosage: 400 MG, QD
     Route: 048
     Dates: start: 20101001

REACTIONS (1)
  - DRUG INEFFECTIVE [None]
